FAERS Safety Report 24420295 (Version 2)
Quarter: 2024Q4

REPORT INFORMATION
  Report Type: Report from Study
  Country: US (occurrence: US)
  Receive Date: 20241010
  Receipt Date: 20241018
  Transmission Date: 20250115
  Serious: No
  Sender: ROCHE
  Company Number: US-ROCHE-3515759

PATIENT
  Age: 23 Year
  Sex: Male

DRUGS (3)
  1. CATHFLO ACTIVASE [Suspect]
     Active Substance: ALTEPLASE
     Indication: Sepsis
     Route: 065
  2. CATHFLO ACTIVASE [Suspect]
     Active Substance: ALTEPLASE
     Dosage: DATE OF SERVICES WERE ON 09/FEB/2024, 10/FEB/2024, 11/FEB/2024, 14/FEB/2024 AND 15/FEB/2024.
     Route: 065
     Dates: start: 20240208
  3. PULMOZYME [Suspect]
     Active Substance: DORNASE ALFA
     Indication: Sepsis
     Route: 065

REACTIONS (3)
  - Off label use [Unknown]
  - No adverse event [Unknown]
  - Off label use [Unknown]
